FAERS Safety Report 14181757 (Version 1)
Quarter: 2017Q4

REPORT INFORMATION
  Report Type: Spontaneous
  Country: US (occurrence: US)
  Receive Date: 20171111
  Receipt Date: 20171111
  Transmission Date: 20180321
  Serious: Yes (Other)
  Sender: FDA-Public Use
  Company Number: None

PATIENT
  Age: 75 Year
  Sex: Female
  Weight: 57.15 kg

DRUGS (1)
  1. CIPROFLOXACIN 500MG TABLETS [Suspect]
     Active Substance: CIPROFLOXACIN
     Indication: URINARY TRACT INFECTION
     Dosage: ?          QUANTITY:14 TABLET(S);?
     Route: 048
     Dates: start: 20171016, end: 20171021

REACTIONS (3)
  - Arthropathy [None]
  - Neuropathy peripheral [None]
  - Musculoskeletal stiffness [None]

NARRATIVE: CASE EVENT DATE: 20171016
